FAERS Safety Report 4444552-4 (Version None)
Quarter: 2004Q3

REPORT INFORMATION
  Report Type: 
  Country: None (occurrence: None)
  Receive Date: 20040902
  Receipt Date: 20040820
  Transmission Date: 20050211
  Serious: Yes (Other)
  Sender: FDA-Public Use
  Company Number: S04-USA-02791-01

PATIENT
  Age: 73 Year
  Sex: Female
  Weight: 78.4723 kg

DRUGS (11)
  1. LEXAPRO [Suspect]
     Indication: DEPRESSION
     Dosage: 10 MG QD PO
     Route: 048
     Dates: start: 20031108, end: 20040201
  2. LEXAPRO [Suspect]
     Indication: DEPRESSION
     Dosage: 5 MG QD PO
     Route: 048
     Dates: start: 20040202, end: 20040209
  3. NORVASC [Concomitant]
  4. CARDIZEM CD [Concomitant]
  5. DIOVAN [Concomitant]
  6. LISINOPRIL [Concomitant]
  7. PLETAL [Concomitant]
  8. HALDOL [Concomitant]
  9. K-DUR 10 [Concomitant]
  10. COUMADIN [Concomitant]
  11. NOVOLIN (INSULIN HUMAN INJECTION, ISOPHANE) [Concomitant]

REACTIONS (7)
  - ABNORMAL BEHAVIOUR [None]
  - COMA [None]
  - CONVULSION [None]
  - DEPRESSED LEVEL OF CONSCIOUSNESS [None]
  - DIZZINESS [None]
  - SENSORY DISTURBANCE [None]
  - SYNCOPE [None]
